FAERS Safety Report 6727396-X (Version None)
Quarter: 2010Q2

REPORT INFORMATION
  Report Type: 
  Country: None (occurrence: None)
  Receive Date: 20100517
  Receipt Date: 20100505
  Transmission Date: 20101027
  Serious: Yes (Hospitalization, Other)
  Sender: FDA-Public Use
  Company Number: US-GENZYME-THYM-1001499

PATIENT
  Age: 38 Year
  Sex: Female

DRUGS (9)
  1. THYMOGLOBULIN [Suspect]
     Indication: PREMEDICATION
     Dosage: 46 MG, ONCE
     Route: 042
     Dates: start: 20100426, end: 20100426
  2. THYMOGLOBULIN [Suspect]
     Dosage: 138 MG, ONCE
     Route: 042
     Dates: start: 20100427, end: 20100427
  3. THYMOGLOBULIN [Suspect]
     Dosage: 184 MG, ONCE
     Route: 042
     Dates: start: 20100428, end: 20100428
  4. GRANULOCYTE COLONY STIMULATING FACTOR [Concomitant]
     Indication: CHRONIC MYELOID LEUKAEMIA
     Dosage: 780 MCG, QD
     Route: 058
     Dates: start: 20100420, end: 20100425
  5. GRANULOCYTE COLONY STIMULATING FACTOR [Concomitant]
     Indication: HAEMATOPOIETIC STEM CELL MOBILISATION
  6. MOZOBIL [Concomitant]
     Indication: CHRONIC MYELOID LEUKAEMIA
     Dosage: 17112 MCG, QD
     Route: 058
     Dates: start: 20100422, end: 20100425
  7. MOZOBIL [Concomitant]
     Indication: HAEMATOPOIETIC STEM CELL MOBILISATION
  8. FLUDARABINE [Concomitant]
     Indication: DRUG USE FOR UNKNOWN INDICATION
     Dosage: 80 MG, QD
     Route: 042
     Dates: start: 20100423, end: 20100426
  9. BUSULFEX [Concomitant]
     Indication: DRUG USE FOR UNKNOWN INDICATION
     Dosage: 230 MG, QD
     Route: 042
     Dates: start: 20100423, end: 20100426

REACTIONS (2)
  - CEREBRAL HAEMORRHAGE [None]
  - THROMBOCYTOPENIA [None]
